FAERS Safety Report 4931805-6 (Version None)
Quarter: 2006Q1

REPORT INFORMATION
  Report Type: 
  Country: None (occurrence: None)
  Receive Date: 20060303
  Receipt Date: 20060228
  Transmission Date: 20060701
  Serious: Yes (Other)
  Sender: FDA-Public Use
  Company Number: HR-ABBOTT-06P-216-0326417-00

PATIENT
  Age: 57 Year
  Sex: Male

DRUGS (3)
  1. CYCLOSPORINE [Suspect]
     Indication: SKIN GRAFT
     Dates: start: 20020401
  2. MYCOPHENOLATE MOFETIL [Concomitant]
     Indication: SKIN GRAFT
     Dates: start: 20020401
  3. STEROIDS [Concomitant]
     Indication: SKIN GRAFT
     Dates: start: 20020401

REACTIONS (1)
  - NEUROENDOCRINE CARCINOMA OF THE SKIN [None]
